FAERS Safety Report 24385967 (Version 2)
Quarter: 2024Q4

REPORT INFORMATION
  Report Type: Spontaneous
  Country: US (occurrence: US)
  Receive Date: 20241001
  Receipt Date: 20241003
  Transmission Date: 20250115
  Serious: Yes (Hospitalization, Other)
  Sender: BIOVITRUM
  Company Number: US-BIOVITRUM-2024-US-012612

PATIENT
  Age: 37 Year
  Sex: Female

DRUGS (1)
  1. DOPTELET [Suspect]
     Active Substance: AVATROMBOPAG MALEATE
     Indication: Immune thrombocytopenia
     Dosage: 2 TABLETS (40 MG) DAILY ON MONDAYS, WEDNESDAYS, AND FRIDAYS. TAKE 1 TABLET (20 MG) DAILY ON SATURDAY
     Route: 065
     Dates: start: 20240302

REACTIONS (2)
  - Platelet count decreased [Unknown]
  - Product dose omission issue [Unknown]
